FAERS Safety Report 8364560-0 (Version None)
Quarter: 2012Q2

REPORT INFORMATION
  Report Type: 
  Country: None (occurrence: None)
  Receive Date: 20120516
  Receipt Date: 20120511
  Transmission Date: 20120825
  Serious: Yes (Death)
  Sender: FDA-Public Use
  Company Number: US-ROCHE-1051037

PATIENT
  Sex: Male
  Weight: 56.75 kg

DRUGS (1)
  1. PULMOZYME [Suspect]
     Indication: CYSTIC FIBROSIS

REACTIONS (1)
  - RESPIRATORY FAILURE [None]
